FAERS Safety Report 4665164-3 (Version None)
Quarter: 2005Q2

REPORT INFORMATION
  Report Type: 
  Country: None (occurrence: None)
  Receive Date: 20050517
  Receipt Date: 20050504
  Transmission Date: 20051028
  Serious: Yes (Other)
  Sender: FDA-Public Use
  Company Number: 2005070162

PATIENT
  Age: 31 Year
  Sex: Female

DRUGS (3)
  1. ATARAX [Suspect]
     Indication: ILL-DEFINED DISORDER
  2. MESALAMINE [Suspect]
     Indication: CROHN'S DISEASE
     Dosage: 1 IN 1 D, ORAL
     Route: 048
     Dates: start: 20020606, end: 20020620
  3. CORTICOSTEROIDS (CORTICOSTEROIDS) [Concomitant]

REACTIONS (3)
  - CAESAREAN SECTION [None]
  - DRUG EXPOSURE DURING PREGNANCY [None]
  - GESTATIONAL DIABETES [None]
